FAERS Safety Report 4603562-4 (Version None)
Quarter: 2005Q1

REPORT INFORMATION
  Report Type: 
  Country: None (occurrence: None)
  Receive Date: 20050308
  Receipt Date: 20050301
  Transmission Date: 20050727
  Serious: No
  Sender: FDA-Public Use
  Company Number: 2004-121766-NL

PATIENT
  Age: 42 Year
  Sex: Male

DRUGS (5)
  1. MIRTAZAPINE [Suspect]
     Indication: ANXIETY
     Dosage: 15 MG/30 MG ORAL
     Route: 048
     Dates: start: 20030901, end: 20040315
  2. MIRTAZAPINE [Suspect]
     Indication: DEPRESSION
     Dosage: 15 MG/30 MG ORAL
     Route: 048
     Dates: start: 20030901, end: 20040315
  3. MIRTAZAPINE [Suspect]
     Indication: ANXIETY
     Dosage: 15 MG/30 MG ORAL
     Route: 048
     Dates: start: 20040316, end: 20040325
  4. MIRTAZAPINE [Suspect]
     Indication: DEPRESSION
     Dosage: 15 MG/30 MG ORAL
     Route: 048
     Dates: start: 20040316, end: 20040325
  5. ALPRAZOLAM [Concomitant]

REACTIONS (3)
  - BLOOD CREATINE PHOSPHOKINASE INCREASED [None]
  - MUSCULOSKELETAL STIFFNESS [None]
  - MYALGIA [None]
